FAERS Safety Report 6182238-9 (Version None)
Quarter: 2009Q2

REPORT INFORMATION
  Report Type: 
  Country: None (occurrence: None)
  Receive Date: 20090507
  Receipt Date: 20090501
  Transmission Date: 20091009
  Serious: Yes (Hospitalization)
  Sender: FDA-Public Use
  Company Number: US-BIOGENIDEC-2008BI020136

PATIENT
  Age: 52 Year
  Sex: Male

DRUGS (10)
  1. TYSABRI [Suspect]
     Indication: MULTIPLE SCLEROSIS
     Route: 042
     Dates: start: 20080611, end: 20080717
  2. COUMADIN [Concomitant]
     Indication: ANTICOAGULANT THERAPY
  3. COUMADIN [Concomitant]
  4. CELEXA [Concomitant]
     Indication: DRUG USE FOR UNKNOWN INDICATION
  5. BACLOFEN [Concomitant]
     Indication: DRUG USE FOR UNKNOWN INDICATION
  6. FLOMAX [Concomitant]
     Indication: DRUG USE FOR UNKNOWN INDICATION
  7. METOPROLOL SUCCINATE [Concomitant]
     Indication: ATRIAL FIBRILLATION
  8. CLONAZEPAM [Concomitant]
     Indication: DRUG USE FOR UNKNOWN INDICATION
  9. FOSAMAX [Concomitant]
     Indication: DRUG USE FOR UNKNOWN INDICATION
  10. MULTI-VITAMIN [Concomitant]
     Indication: DRUG USE FOR UNKNOWN INDICATION

REACTIONS (5)
  - BACTERIAL SEPSIS [None]
  - FALL [None]
  - HIP FRACTURE [None]
  - HYPOAESTHESIA [None]
  - IMPACTED FRACTURE [None]
